FAERS Safety Report 9336706 (Version 3)
Quarter: 2014Q1

REPORT INFORMATION
  Report Type: Spontaneous
  Country: DK (occurrence: JP)
  Receive Date: 20130607
  Receipt Date: 20140102
  Transmission Date: 20141002
  Serious: Yes (Disabling, Other)
  Sender: FDA-Public Use
  Company Number: JP-FRI-1000045731

PATIENT
  Age: 30 Year
  Sex: Female
  Weight: 62 kg

DRUGS (2)
  1. LEXAPRO [Suspect]
     Indication: DEPRESSION
     Dosage: 20 MG
     Route: 048
     Dates: start: 201211, end: 20130522
  2. MEILAX [Concomitant]
     Dosage: 1 MG
     Route: 048
     Dates: start: 20121015, end: 20130522

REACTIONS (3)
  - Cerebral haemorrhage [Recovered/Resolved with Sequelae]
  - Renal impairment [Not Recovered/Not Resolved]
  - Pancytopenia [Recovered/Resolved]
